FAERS Safety Report 6705795-X (Version None)
Quarter: 2010Q2

REPORT INFORMATION
  Report Type: 
  Country: None (occurrence: None)
  Receive Date: 20100428
  Receipt Date: 20100413
  Transmission Date: 20101027
  Serious: Yes (Death, Hospitalization)
  Sender: FDA-Public Use
  Company Number: AUR-APL-2010-01087

PATIENT
  Age: 71 Year
  Sex: Female
  Weight: 50 kg

DRUGS (11)
  1. AMLODIPINE [Suspect]
     Dosage: 27 TABS, ONE DOSE, ORAL
     Route: 048
  2. ASPIRIN [Concomitant]
  3. ALBUTEROL [Concomitant]
  4. FEXOFENADINE [Concomitant]
  5. ACETAMINOPHEN AND HYDROCODONE BITARTRATE [Concomitant]
  6. IRON SULFATETHIAMIN COMPOUND TAB [Concomitant]
  7. LISINOPRIL [Concomitant]
  8. SENNA [Concomitant]
  9. SIMVASTATIN [Concomitant]
  10. TIOTROPIUM [Concomitant]
  11. TRAZODONE HCL [Concomitant]

REACTIONS (12)
  - ACIDOSIS [None]
  - ANAEMIA [None]
  - BLOOD PH DECREASED [None]
  - HYPONATRAEMIA [None]
  - HYPOTENSION [None]
  - MENTAL STATUS CHANGES [None]
  - ORGAN FAILURE [None]
  - OVERDOSE [None]
  - PO2 DECREASED [None]
  - POISONING [None]
  - PULMONARY OEDEMA [None]
  - WITHDRAWAL OF LIFE SUPPORT [None]
